FAERS Safety Report 5874007-1 (Version None)
Quarter: 2008Q3

REPORT INFORMATION
  Report Type: 
  Country: None (occurrence: None)
  Receive Date: 20080908
  Receipt Date: 20080826
  Transmission Date: 20090109
  Serious: Yes (Other)
  Sender: FDA-Public Use
  Company Number: GR-ELI_LILLY_AND_COMPANY-GR200808005661

PATIENT
  Age: 10 Year
  Sex: Male
  Weight: 32 kg

DRUGS (2)
  1. FLUOXETINE HYDROCHLORIDE [Suspect]
     Indication: OBSESSIVE-COMPULSIVE DISORDER
     Dosage: 7.5 ML, DAILY (1/D)
     Route: 048
     Dates: start: 20080701
  2. RIVOTRIL [Concomitant]
     Indication: ANXIETY
     Dosage: 0.125 MG, 2/D
     Route: 048
     Dates: start: 20080701

REACTIONS (1)
  - HYPERTHYROIDISM [None]
